FAERS Safety Report 6059366-1 (Version None)
Quarter: 2009Q1

REPORT INFORMATION
  Report Type: 
  Country: None (occurrence: None)
  Receive Date: 20090130
  Receipt Date: 20090126
  Transmission Date: 20090719
  Serious: Yes (Hospitalization)
  Sender: FDA-Public Use
  Company Number: GB-SANOFI-SYNTHELABO-F01200900094

PATIENT
  Sex: Female

DRUGS (6)
  1. METOCLOPRAMIDE [Concomitant]
  2. LANSOPRAZOLE [Concomitant]
  3. ACETAMINOPHEN W/ CODEINE [Concomitant]
  4. CAPECITABINE [Suspect]
     Dosage: 2000 MG.M2 DAILY IN 2 DIVIDED DOSE ON DAYS 1-14
     Route: 048
  5. BEVACIZUMAB [Suspect]
     Dosage: 7.5 MG/KG
     Route: 042
  6. OXALIPLATIN [Suspect]
     Indication: COLORECTAL CANCER
     Dosage: 130 MG/M2
     Route: 042

REACTIONS (2)
  - DIARRHOEA [None]
  - DUODENAL PERFORATION [None]
